FAERS Safety Report 21691869 (Version 1)
Quarter: 2022Q4

REPORT INFORMATION
  Report Type: Report from Study
  Country: US (occurrence: US)
  Receive Date: 20221207
  Receipt Date: 20221207
  Transmission Date: 20230113
  Serious: No
  Sender: FDA-Public Use
  Company Number: US-ABBVIE-4192654

PATIENT
  Age: 62 Year
  Sex: Female

DRUGS (1)
  1. HUMIRA [Suspect]
     Active Substance: ADALIMUMAB
     Indication: Crohn^s disease
     Dosage: STRENGTH: 40 MILLIGRAM?FIRST ADMIN DATE-30 JUN 2022
     Route: 058

REACTIONS (5)
  - Fatigue [Recovering/Resolving]
  - Dry eye [Recovering/Resolving]
  - Chest pain [Recovering/Resolving]
  - Myalgia [Recovering/Resolving]
  - Migraine [Recovering/Resolving]

NARRATIVE: CASE EVENT DATE: 20221001
